FAERS Safety Report 6748169-8 (Version None)
Quarter: 2010Q2

REPORT INFORMATION
  Report Type: 
  Country: None (occurrence: None)
  Receive Date: 20100531
  Receipt Date: 20100527
  Transmission Date: 20101027
  Serious: Yes (Other)
  Sender: FDA-Public Use
  Company Number: US-BRISTOL-MYERS SQUIBB COMPANY-15124019

PATIENT
  Age: 38 Year
  Sex: Female

DRUGS (2)
  1. REYATAZ [Suspect]
     Dates: start: 20090601, end: 20100101
  2. NORVIR [Suspect]
     Indication: HIV TEST POSITIVE
     Dosage: SOFT GELATIN CAPSULE
     Route: 048
     Dates: start: 20090601, end: 20100101

REACTIONS (1)
  - HEPATITIS [None]
